FAERS Safety Report 9219529 (Version 1)
Quarter: 2013Q2

REPORT INFORMATION
  Report Type: Spontaneous
  Country: US (occurrence: US)
  Receive Date: 20130409
  Receipt Date: 20130409
  Transmission Date: 20140414
  Serious: No
  Sender: FDA-Public Use
  Company Number: US-PFIZER INC-2013107566

PATIENT
  Sex: Female

DRUGS (3)
  1. LEVOTHYROXINE SODIUM [Suspect]
     Dosage: UNK
  2. SYNTHROID [Suspect]
     Dosage: UNK
  3. ARMOUR THYROID [Suspect]
     Dosage: UNK

REACTIONS (3)
  - Heart rate increased [Unknown]
  - Drug hypersensitivity [Unknown]
  - Drug ineffective [Unknown]
